FAERS Safety Report 7826604-1 (Version None)
Quarter: 2011Q4

REPORT INFORMATION
  Report Type: 
  Country: None (occurrence: None)
  Receive Date: 20111018
  Receipt Date: 20111013
  Transmission Date: 20120403
  Serious: No
  Sender: FDA-Public Use
  Company Number: 2011-01297

PATIENT
  Sex: Male

DRUGS (1)
  1. ALL ZICAM PRODUCTS [Suspect]
     Indication: NASOPHARYNGITIS
     Dosage: 1 DOSE APX 6-12 MONTHS AGO

REACTIONS (1)
  - AGEUSIA [None]
